FAERS Safety Report 16262253 (Version 1)
Quarter: 2019Q2

REPORT INFORMATION
  Report Type: Spontaneous
  Country: JP (occurrence: JP)
  Receive Date: 20190501
  Receipt Date: 20190501
  Transmission Date: 20190711
  Serious: Yes (Other)
  Sender: FDA-Public Use
  Company Number: JP-SYNEX-T201903437

PATIENT

DRUGS (1)
  1. INOFLO [Suspect]
     Active Substance: NITRIC OXIDE
     Indication: PERSISTENT FOETAL CIRCULATION
     Dosage: UNK (INHALATION)
     Route: 050

REACTIONS (2)
  - Patent ductus arteriosus [Unknown]
  - Retinopathy of prematurity [Unknown]
